FAERS Safety Report 4898485-X (Version None)
Quarter: 2006Q1

REPORT INFORMATION
  Report Type: 
  Country: None (occurrence: None)
  Receive Date: 20060130
  Receipt Date: 20060113
  Transmission Date: 20060701
  Serious: Yes (Other)
  Sender: FDA-Public Use
  Company Number: 2006-BP-00717RO

PATIENT
  Age: 35 Year
  Sex: Male

DRUGS (2)
  1. LITHIUM CARBONATE [Suspect]
     Indication: BIPOLAR DISORDER
     Dosage: 900 MG DAILY
  2. CHLORPROMAZINE [Suspect]
     Indication: BIPOLAR DISORDER
     Dosage: 50 MG DAILY

REACTIONS (3)
  - DEVICE INTERACTION [None]
  - GRAND MAL CONVULSION [None]
  - POSTURE ABNORMAL [None]
